FAERS Safety Report 5091515-4 (Version None)
Quarter: 2006Q3

REPORT INFORMATION
  Report Type: 
  Country: None (occurrence: None)
  Receive Date: 20060824
  Receipt Date: 20060810
  Transmission Date: 20061208
  Serious: No
  Sender: FDA-Public Use
  Company Number: 06-46/130-07

PATIENT
  Age: 12 Year
  Sex: Male

DRUGS (1)
  1. MIXED AMPHETAMINE SALTS TABLETS 5 MG [Suspect]
     Indication: ATTENTION DEFICIT/HYPERACTIVITY DISORDER

REACTIONS (3)
  - AMNESIA [None]
  - GRAND MAL CONVULSION [None]
  - HEADACHE [None]
